FAERS Safety Report 26102112 (Version 1)
Quarter: 2025Q4

REPORT INFORMATION
  Report Type: Spontaneous
  Country: CN (occurrence: CN)
  Receive Date: 20251128
  Receipt Date: 20251128
  Transmission Date: 20260118
  Serious: Yes (Hospitalization, Other)
  Sender: RANBAXY
  Company Number: CN-SUN PHARMACEUTICAL INDUSTRIES INC-2025R1-539175

PATIENT
  Age: 18 Year
  Sex: Female
  Weight: 51.5 kg

DRUGS (6)
  1. PALIPERIDONE [Suspect]
     Active Substance: PALIPERIDONE
     Indication: Affective disorder
     Dosage: 6 MILLIGRAM, BID
     Route: 048
     Dates: start: 20251023, end: 20251112
  2. PALIPERIDONE [Suspect]
     Active Substance: PALIPERIDONE
     Dosage: UNK
     Route: 048
     Dates: start: 20251112
  3. LORAZEPAM [Concomitant]
     Active Substance: LORAZEPAM
     Indication: Affective disorder
     Dosage: 1 MILLIGRAM, QD
     Route: 048
     Dates: start: 20251023, end: 20251120
  4. LITHIUM CARBONATE [Concomitant]
     Active Substance: LITHIUM CARBONATE
     Indication: Affective disorder
     Dosage: 0.6G, QD + 0.3G, QD
     Route: 048
     Dates: start: 20251023, end: 20251104
  5. LITHIUM CARBONATE [Concomitant]
     Active Substance: LITHIUM CARBONATE
     Dosage: 0.3 GRAM, BID
     Route: 048
     Dates: start: 20251104, end: 20251120
  6. PROPRANOLOL HYDROCHLORIDE [Concomitant]
     Active Substance: PROPRANOLOL HYDROCHLORIDE
     Indication: Affective disorder
     Dosage: 10 MILLIGRAM, BID
     Route: 048
     Dates: start: 20251023, end: 20251120

REACTIONS (2)
  - Galactorrhoea [Unknown]
  - Hyperprolactinaemia [Unknown]

NARRATIVE: CASE EVENT DATE: 20251112
